FAERS Safety Report 14557413 (Version 1)
Quarter: 2018Q1

REPORT INFORMATION
  Report Type: Other
  Country: FR (occurrence: FR)
  Receive Date: 20180221
  Receipt Date: 20180221
  Transmission Date: 20180509
  Serious: Yes (Hospitalization, Other)
  Sender: FDA-Public Use
  Company Number: FR-ASTELLAS-2018US008831

PATIENT
  Age: 59 Year
  Sex: Male

DRUGS (1)
  1. AMPHOTERICIN B, LIPOSOME [Suspect]
     Active Substance: AMPHOTERICIN B
     Indication: BRONCHOPULMONARY ASPERGILLOSIS
     Route: 042
     Dates: start: 20180121, end: 20180201

REACTIONS (3)
  - Hypokalaemia [Recovered/Resolved]
  - Renal tubular disorder [Recovered/Resolved]
  - Electrocardiogram U wave present [Recovered/Resolved]

NARRATIVE: CASE EVENT DATE: 20180123
